FAERS Safety Report 6964928-0 (Version None)
Quarter: 2010Q3

REPORT INFORMATION
  Report Type: 
  Country: None (occurrence: None)
  Receive Date: 20100903
  Receipt Date: 20100825
  Transmission Date: 20110219
  Serious: Yes (Other)
  Sender: FDA-Public Use
  Company Number: BE-ASTRAZENECA-2010SE24892

PATIENT
  Age: 941 Month
  Sex: Female

DRUGS (7)
  1. CRESTOR [Suspect]
     Indication: HYPERLIPIDAEMIA
     Route: 048
     Dates: start: 20070101, end: 20100531
  2. PANTOMED [Concomitant]
     Indication: OESOPHAGITIS
     Route: 048
     Dates: start: 20060101
  3. EMCONCOR MITIS [Concomitant]
     Indication: HYPERTENSION
     Route: 048
  4. ASPIRIN [Concomitant]
     Route: 048
  5. DAFLON [Concomitant]
     Route: 048
  6. ALDACTONE [Concomitant]
     Route: 048
  7. CALCIUM SANDOZ [Concomitant]
     Route: 048

REACTIONS (1)
  - ECZEMA [None]
